FAERS Safety Report 21673508 (Version 1)
Quarter: 2022Q4

REPORT INFORMATION
  Report Type: Spontaneous
  Country: PL (occurrence: PL)
  Receive Date: 20221202
  Receipt Date: 20221202
  Transmission Date: 20230113
  Serious: Yes (Hospitalization)
  Sender: FDA-Public Use
  Company Number: PL-MYLANLABS-2022M1134334

PATIENT
  Age: 10 Year
  Sex: Male

DRUGS (4)
  1. SUNITINIB [Suspect]
     Active Substance: SUNITINIB
     Indication: Clear cell renal cell carcinoma
     Dosage: 15 MILLIGRAM/SQ. METER; FOR 28 DAYS FOLLOWED BY A 14 DAY BREAK. RECEIVED 2 COURSES
     Route: 065
     Dates: start: 202002
  2. SUNITINIB [Suspect]
     Active Substance: SUNITINIB
     Dosage: 25 MILLIGRAM/SQ. METER; FROM 3RD-8TH COURSE
     Route: 065
  3. VINCRISTINE [Suspect]
     Active Substance: VINCRISTINE
     Indication: Clear cell renal cell carcinoma
     Dosage: UNK; RECEIVED 2 COURSES
     Route: 065
  4. ACTINOMYCIN D [Suspect]
     Active Substance: DACTINOMYCIN
     Indication: Clear cell renal cell carcinoma
     Dosage: UNK; RECEIVED 1 COURSE
     Route: 065

REACTIONS (2)
  - Drug ineffective [Unknown]
  - Hair colour changes [Unknown]
